FAERS Safety Report 13700999 (Version 2)
Quarter: 2017Q3

REPORT INFORMATION
  Report Type: Spontaneous
  Country: US (occurrence: US)
  Receive Date: 20170629
  Receipt Date: 20170802
  Transmission Date: 20171127
  Serious: No
  Sender: FDA-Public Use
  Company Number: US-BRISTOL-MYERS SQUIBB COMPANY-BMS-2017-057407

PATIENT
  Sex: Male
  Weight: 90.71 kg

DRUGS (1)
  1. YERVOY [Suspect]
     Active Substance: IPILIMUMAB
     Indication: MALIGNANT MELANOMA
     Dosage: 912 MG, UNK
     Route: 042
     Dates: start: 20170606

REACTIONS (3)
  - Pyrexia [Unknown]
  - Fatigue [Unknown]
  - Influenza like illness [Unknown]
